FAERS Safety Report 8481059 (Version 7)
Quarter: 2012Q4

REPORT INFORMATION
  Report Type: 
  Country: US (occurrence: US)
  Receive Date: 20120328
  Receipt Date: 20121008
  Transmission Date: 20130627
  Serious: Yes (Hospitalization, Disabling, Other)
  Sender: FDA-Public Use
  Company Number: US-009507513-1203USA03480

PATIENT

DRUGS (10)
  1. FOSAMAX [Suspect]
     Indication: OSTEOPOROSIS
     Dosage: 70 mg, UNK
     Route: 048
     Dates: start: 2001, end: 20080121
  2. FOSAMAX [Suspect]
     Dosage: 35 UNK, UNK
     Route: 048
     Dates: start: 20100405
  3. FOSAMAX [Suspect]
     Indication: OSTEOPOROSIS
     Dosage: 70 mg, UNK
     Route: 048
     Dates: start: 20080218, end: 20100308
  4. FOSAMAX [Suspect]
     Dosage: 70 mg, QW
     Route: 048
     Dates: start: 20090323, end: 20100308
  5. ALENDRONATE SODIUM [Suspect]
     Dosage: 70 mg, UNK
  6. ALBUTEROL [Concomitant]
     Indication: ASTHMA
     Dates: start: 2001
  7. SPIRIVA [Concomitant]
     Indication: ASTHMA
     Dosage: UNK, qd
     Dates: start: 2001
  8. THEOPHYLLINE [Concomitant]
     Indication: ASTHMA
     Dosage: 200 mg, bid
     Dates: start: 2001
  9. ADVAIR [Concomitant]
     Indication: ASTHMA
     Dosage: 250/50,bid
     Dates: start: 2001
  10. ATROVENT [Concomitant]
     Indication: ASTHMA
     Dates: start: 2001

REACTIONS (89)
  - Hip fracture [Not Recovered/Not Resolved]
  - Osteoporosis [Not Recovered/Not Resolved]
  - Stress fracture [Not Recovered/Not Resolved]
  - Femur fracture [Not Recovered/Not Resolved]
  - Low turnover osteopathy [Not Recovered/Not Resolved]
  - Spinal fracture [Unknown]
  - Road traffic accident [Unknown]
  - Osteonecrosis [Unknown]
  - Osteonecrosis [Unknown]
  - Squamous cell carcinoma of skin [Unknown]
  - Squamous cell carcinoma [Unknown]
  - Hyponatraemia [Unknown]
  - Hypoxia [Unknown]
  - Head injury [Unknown]
  - Laceration [Unknown]
  - Blindness transient [Unknown]
  - Rib fracture [Unknown]
  - Spinal compression fracture [Unknown]
  - Cataract operation [Unknown]
  - Vocal cord polypectomy [Unknown]
  - Chronic obstructive pulmonary disease [Unknown]
  - Faecaloma [Unknown]
  - Small intestinal obstruction [Unknown]
  - Neuropathy peripheral [Unknown]
  - Pneumonia [Unknown]
  - Femur fracture [Unknown]
  - Dizziness [Unknown]
  - Hypertension [Not Recovered/Not Resolved]
  - Rib fracture [Unknown]
  - Blood cholesterol increased [Unknown]
  - Chronic obstructive pulmonary disease [Not Recovered/Not Resolved]
  - Emphysema [Not Recovered/Not Resolved]
  - Anxiety [Not Recovered/Not Resolved]
  - Depression [Unknown]
  - Fall [Unknown]
  - Palpitations [Unknown]
  - Supraventricular tachycardia [Not Recovered/Not Resolved]
  - Joint dislocation [Unknown]
  - Decreased appetite [Unknown]
  - Musculoskeletal stiffness [Unknown]
  - Weight decreased [Unknown]
  - Osteoarthritis [Unknown]
  - Ligament sprain [Unknown]
  - Osteopenia [Unknown]
  - Aortic aneurysm [Unknown]
  - Cataract [Unknown]
  - Bronchitis chronic [Unknown]
  - Macular degeneration [Unknown]
  - Spinal column stenosis [Unknown]
  - Corneal dystrophy [Unknown]
  - Laryngitis [Unknown]
  - Pleural effusion [Unknown]
  - Insomnia [Unknown]
  - Tricuspid valve incompetence [Unknown]
  - Vocal cord thickening [Unknown]
  - Conjunctivitis [Unknown]
  - Pulmonary mass [Unknown]
  - Carotid artery stenosis [Unknown]
  - Hepatic steatosis [Unknown]
  - Haematoma [Unknown]
  - Joint effusion [Unknown]
  - Osteoarthritis [Unknown]
  - Kyphosis [Unknown]
  - Intervertebral disc degeneration [Unknown]
  - Spinal osteoarthritis [Unknown]
  - Spondylolisthesis [Unknown]
  - Spondylolisthesis [Unknown]
  - Lumbar spinal stenosis [Unknown]
  - Uterine dilation and curettage [Unknown]
  - Fibrocystic breast disease [Unknown]
  - Hernia [Unknown]
  - Faecal incontinence [Unknown]
  - Diverticulum [Unknown]
  - Colitis microscopic [Unknown]
  - Anal sphincter atony [Unknown]
  - Malabsorption [Unknown]
  - Nervous system disorder [Unknown]
  - Gastrointestinal disorder [Unknown]
  - Aortic aneurysm [Unknown]
  - Biliary dilatation [Unknown]
  - Gallbladder disorder [Unknown]
  - Back pain [Not Recovered/Not Resolved]
  - Pain in extremity [Unknown]
  - Oedema peripheral [Unknown]
  - Drug ineffective [Unknown]
  - Constipation [Unknown]
  - Headache [Recovered/Resolved]
  - Abdominal pain upper [Unknown]
  - Nausea [Unknown]
